FAERS Safety Report 5061121-6 (Version None)
Quarter: 2006Q3

REPORT INFORMATION
  Report Type: 
  Country: None (occurrence: None)
  Receive Date: 20060720
  Receipt Date: 20060705
  Transmission Date: 20061208
  Serious: Yes (Other)
  Sender: FDA-Public Use
  Company Number: 2006-BP-07739RO

PATIENT
  Age: 5 Year

DRUGS (4)
  1. CYCLOPHOSPHAMIDE [Suspect]
     Indication: CHEMOTHERAPY
  2. DOXORUBICIN HCL [Suspect]
     Indication: CHEMOTHERAPY
  3. TENIPOSIDE (TENIPOSIDE) [Suspect]
     Indication: CHEMOTHERAPY
  4. CISPLATIN [Suspect]
     Indication: CHEMOTHERAPY

REACTIONS (1)
  - RENAL CELL CARCINOMA STAGE UNSPECIFIED [None]
